FAERS Safety Report 8280773-0 (Version None)
Quarter: 2012Q2

REPORT INFORMATION
  Report Type: 
  Country: None (occurrence: None)
  Receive Date: 20120412
  Receipt Date: 20120405
  Transmission Date: 20120825
  Serious: Yes (Hospitalization, Other)
  Sender: FDA-Public Use
  Company Number: US-ABBOTT-12P-163-0918992-00

PATIENT
  Sex: Female

DRUGS (5)
  1. ENTOCORT EC [Concomitant]
     Indication: PRODUCT USED FOR UNKNOWN INDICATION
  2. HUMIRA [Suspect]
     Dates: start: 20120301, end: 20120301
  3. ATENOLOL [Concomitant]
     Indication: PRODUCT USED FOR UNKNOWN INDICATION
  4. HUMIRA [Suspect]
     Indication: CROHN'S DISEASE
     Dosage: ONCE
     Route: 058
     Dates: start: 20120201, end: 20120201
  5. OMEPRAZOLE [Concomitant]
     Indication: PRODUCT USED FOR UNKNOWN INDICATION

REACTIONS (8)
  - ASTHENIA [None]
  - SENSATION OF HEAVINESS [None]
  - LUPUS-LIKE SYNDROME [None]
  - PAIN IN EXTREMITY [None]
  - INFLAMMATION [None]
  - RASH [None]
  - PAIN [None]
  - JOINT SWELLING [None]
